FAERS Safety Report 6929976-5 (Version None)
Quarter: 2010Q3

REPORT INFORMATION
  Report Type: 
  Country: None (occurrence: None)
  Receive Date: 20100818
  Receipt Date: 20100810
  Transmission Date: 20110219
  Serious: Yes (Hospitalization)
  Sender: FDA-Public Use
  Company Number: CA-SANOFI-AVENTIS-F01200901034

PATIENT
  Sex: Male

DRUGS (6)
  1. OXALIPLATIN [Suspect]
     Indication: RECTAL CANCER
     Route: 041
     Dates: start: 20090323, end: 20090323
  2. OXALIPLATIN [Suspect]
     Route: 041
  3. CAPECITABINE [Suspect]
     Indication: RECTAL CANCER
     Route: 048
  4. CAPECITABINE [Suspect]
     Route: 048
     Dates: start: 20090323
  5. BEVACIZUMAB [Suspect]
     Indication: RECTAL CANCER
     Route: 042
  6. BEVACIZUMAB [Suspect]
     Route: 042
     Dates: start: 20090309, end: 20090309

REACTIONS (2)
  - GASTROENTERITIS RADIATION [None]
  - SMALL INTESTINAL OBSTRUCTION [None]
